FAERS Safety Report 10638104 (Version 1)
Quarter: 2014Q4

REPORT INFORMATION
  Report Type: Spontaneous
  Country: US (occurrence: None)
  Receive Date: 20141121
  Receipt Date: 20141121
  Transmission Date: 20150529
  Serious: No
  Sender: FDA-Public Use
  Company Number: 163-10004-14081280

PATIENT
  Age: 62 Year
  Sex: Male

DRUGS (9)
  1. SYNTHROID(LEVOTHYROXINE SODIUM) [Concomitant]
  2. OTEZLA [Suspect]
     Active Substance: APREMILAST
     Indication: PSORIATIC ARTHROPATHY
     Route: 048
     Dates: start: 20140410, end: 2014
  3. EFFIENT (PRESUGREL HYDROCHLORIDE) [Concomitant]
  4. VITAMIN D (ERGOCALCIFEROL) [Concomitant]
     Active Substance: ERGOCALCIFEROL
  5. GEMIFIBROZIL(GEMFIBROZIL) [Concomitant]
  6. LISINOPRIL(LISINOPRIL) [Concomitant]
     Active Substance: LISINOPRIL
  7. METOPROLOL TARTRATE(METOPROLOL TARTRATE) [Concomitant]
  8. LIPITOR [Concomitant]
     Active Substance: ATORVASTATIN CALCIUM
  9. TRAMADOL HYDROCHLORIDE. [Concomitant]
     Active Substance: TRAMADOL HYDROCHLORIDE

REACTIONS (1)
  - Dyspepsia [None]

NARRATIVE: CASE EVENT DATE: 2014
